FAERS Safety Report 12155622 (Version 3)
Quarter: 2016Q2

REPORT INFORMATION
  Report Type: Report from Study
  Country: ES (occurrence: ES)
  Receive Date: 20160307
  Receipt Date: 20160513
  Transmission Date: 20160815
  Serious: Yes (Hospitalization)
  Sender: FDA-Public Use
  Company Number: ES-SA-2016SA041905

PATIENT
  Age: 37 Year
  Sex: Female
  Weight: 55.5 kg

DRUGS (30)
  1. CETIRIZINE [Suspect]
     Active Substance: CETIRIZINE HYDROCHLORIDE
     Route: 048
     Dates: start: 20150222, end: 20150227
  2. CETIRIZINE [Suspect]
     Active Substance: CETIRIZINE HYDROCHLORIDE
     Dosage: V20: DAY 0
     Route: 048
  3. RANITIDINE. [Suspect]
     Active Substance: RANITIDINE
     Route: 048
  4. ACICLOVIR [Suspect]
     Active Substance: ACYCLOVIR
     Route: 048
     Dates: start: 20150223, end: 20150227
  5. DEXCHLORPHENIRAMINE MALEATE. [Suspect]
     Active Substance: DEXCHLORPHENIRAMINE MALEATE
     Route: 042
     Dates: start: 20150223, end: 20150227
  6. SOLU MODERIN [Suspect]
     Active Substance: METHYLPREDNISOLONE SODIUM SUCCINATE
     Route: 042
     Dates: start: 20150223, end: 20150224
  7. RANITIDINE. [Suspect]
     Active Substance: RANITIDINE
     Route: 048
     Dates: start: 20160225, end: 20160226
  8. RIVOTRIL [Concomitant]
     Active Substance: CLONAZEPAM
     Indication: DRUG THERAPY
     Route: 048
     Dates: start: 20150803
  9. CETIRIZINE [Suspect]
     Active Substance: CETIRIZINE HYDROCHLORIDE
     Route: 048
     Dates: start: 20160225, end: 20160226
  10. SIRDALUD [Concomitant]
     Active Substance: TIZANIDINE
     Indication: DRUG THERAPY
     Route: 048
     Dates: start: 20150803
  11. LEMTRADA [Suspect]
     Active Substance: ALEMTUZUMAB
     Indication: RELAPSING-REMITTING MULTIPLE SCLEROSIS
     Route: 042
     Dates: start: 20150223, end: 20150227
  12. MEDROL [Suspect]
     Active Substance: METHYLPREDNISOLONE
     Route: 042
     Dates: start: 20160226, end: 20160226
  13. ACICLOVIR [Suspect]
     Active Substance: ACYCLOVIR
     Route: 048
     Dates: start: 20160225, end: 20160225
  14. SOLU MODERIN [Suspect]
     Active Substance: METHYLPREDNISOLONE SODIUM SUCCINATE
     Route: 042
     Dates: start: 20150227, end: 20150227
  15. SATIVEX [Concomitant]
     Active Substance: NABIXIMOLS
     Indication: DRUG THERAPY
     Route: 055
     Dates: start: 20150602
  16. PARACETAMOL [Suspect]
     Active Substance: ACETAMINOPHEN
     Route: 048
     Dates: start: 20150223, end: 20150227
  17. MEDROL [Suspect]
     Active Substance: METHYLPREDNISOLONE
     Route: 048
  18. SOLU MODERIN [Suspect]
     Active Substance: METHYLPREDNISOLONE SODIUM SUCCINATE
     Route: 042
     Dates: start: 20150226, end: 20150226
  19. FAMPYRA [Concomitant]
     Active Substance: DALFAMPRIDINE
     Indication: DRUG THERAPY
     Route: 048
     Dates: start: 20150602
  20. CITALOPRAM [Concomitant]
     Active Substance: CITALOPRAM HYDROBROMIDE
     Indication: DRUG THERAPY
     Route: 048
     Dates: start: 20151006
  21. DEXCHLORPHENIRAMINE MALEATE. [Suspect]
     Active Substance: DEXCHLORPHENIRAMINE MALEATE
     Route: 042
     Dates: start: 20160225, end: 20160226
  22. PARACETAMOL [Suspect]
     Active Substance: ACETAMINOPHEN
     Route: 048
     Dates: start: 20160225, end: 20160226
  23. MEDROL [Suspect]
     Active Substance: METHYLPREDNISOLONE
     Route: 042
     Dates: start: 20160225, end: 20160225
  24. ACICLOVIR [Suspect]
     Active Substance: ACYCLOVIR
     Route: 048
     Dates: start: 20160226, end: 20160226
  25. SOLU MODERIN [Suspect]
     Active Substance: METHYLPREDNISOLONE SODIUM SUCCINATE
     Route: 042
     Dates: start: 20150225, end: 20150225
  26. ZEBINIX [Concomitant]
     Active Substance: ESLICARBAZEPINE ACETATE
     Indication: DRUG THERAPY
     Route: 048
     Dates: start: 20151110
  27. LEMTRADA [Suspect]
     Active Substance: ALEMTUZUMAB
     Indication: RELAPSING-REMITTING MULTIPLE SCLEROSIS
     Route: 042
     Dates: start: 20160225, end: 20160226
  28. RANITIDINE. [Suspect]
     Active Substance: RANITIDINE
     Route: 048
     Dates: start: 20150222, end: 20150227
  29. MEDROL [Suspect]
     Active Substance: METHYLPREDNISOLONE
     Route: 048
     Dates: start: 20150222, end: 20150227
  30. GABAPENTIN. [Concomitant]
     Active Substance: GABAPENTIN
     Indication: PROPHYLAXIS
     Route: 048
     Dates: start: 20150216

REACTIONS (5)
  - Hepatitis viral [Recovered/Resolved]
  - Blood creatinine decreased [None]
  - White blood cell count decreased [None]
  - Platelet count decreased [None]
  - Haemoglobin decreased [None]

NARRATIVE: CASE EVENT DATE: 20160226
